FAERS Safety Report 4297492-8 (Version None)
Quarter: 2004Q1

REPORT INFORMATION
  Report Type: 
  Country: None (occurrence: None)
  Receive Date: 20040218
  Receipt Date: 20040205
  Transmission Date: 20041129
  Serious: Yes (Disabling)
  Sender: FDA-Public Use
  Company Number: CH-GLAXOSMITHKLINE-B0322384A

PATIENT
  Sex: Male
  Weight: 74 kg

DRUGS (10)
  1. PAROXETINE [Suspect]
     Indication: DEPRESSION
     Dosage: 20MG PER DAY
     Route: 048
     Dates: start: 20040114, end: 20040119
  2. MILLEPERTUIS [Suspect]
     Indication: DEPRESSION
     Dosage: 300MG PER DAY
     Route: 048
     Dates: start: 20040116, end: 20040119
  3. ACETYLSALICYLIC ACID SRT [Concomitant]
     Indication: PLATELET AGGREGATION INHIBITION
     Dosage: 100MG PER DAY
     Route: 048
     Dates: start: 20030801
  4. LOSARTAN [Concomitant]
     Indication: INFARCTION
     Dosage: 25MG PER DAY
     Route: 048
     Dates: start: 20030801
  5. AMIODARONE HCL [Concomitant]
     Indication: INFARCTION
     Dosage: 200MG PER DAY
     Route: 048
     Dates: start: 20030801
  6. SIMVASTATIN [Concomitant]
     Indication: INFARCTION
     Dosage: 20MG PER DAY
     Route: 048
     Dates: start: 20030801
  7. CARVEDILOL [Concomitant]
     Indication: INFARCTION
     Dosage: 12.5MG PER DAY
     Route: 048
     Dates: start: 20030801
  8. ZOLPIDEM TARTRATE [Concomitant]
     Dosage: 10MG PER DAY
     Route: 048
     Dates: start: 20040114
  9. MIRTAZAPINE [Concomitant]
  10. ALPRAZOLAM [Concomitant]

REACTIONS (12)
  - ABDOMINAL PAIN LOWER [None]
  - AGITATION [None]
  - ANXIETY [None]
  - BLOOD PRESSURE INCREASED [None]
  - DRUG INTERACTION [None]
  - DYSPNOEA [None]
  - HALLUCINATION, VISUAL [None]
  - PARAESTHESIA [None]
  - SEROTONIN SYNDROME [None]
  - TACHYPNOEA [None]
  - URINARY RETENTION [None]
  - VISION BLURRED [None]
